FAERS Safety Report 9457526 (Version 1)
Quarter: 2013Q3

REPORT INFORMATION
  Report Type: Spontaneous
  Country: US (occurrence: None)
  Receive Date: 20130812
  Receipt Date: 20130812
  Transmission Date: 20140515
  Serious: Yes (Hospitalization, Disabling)
  Sender: FDA-Public Use
  Company Number: AG-2012-1639

PATIENT
  Age: 70 Year
  Sex: Male
  Weight: 88 kg

DRUGS (19)
  1. CHLORAMBUCIL (CHLORAMBUCIL) (UNKNOWN) [Suspect]
     Indication: CHRONIC LYMPHOCYTIC LEUKAEMIA
     Dosage: UNKNOWN (UNKNOWN, UNKNOWN, UNKNOWN)
  2. OBINUTUZUMAB [Suspect]
     Indication: CHRONIC LYMPHOCYTIC LEUKAEMIA
     Dosage: 1000 MILLIGRAM (UNKNOWN,1), INTRAVENOUS (NOT OTHERWISE SPECIFIED)
     Route: 042
     Dates: start: 20101122
  3. MICARDIS  (TELMISARTAN) (UNKNOWN) [Concomitant]
  4. PLAVIS (CLOPIDOGREL) (UNKNOWN) [Concomitant]
  5. MOLSIDOLAT (MOLSIDOMINE) [Concomitant]
  6. PROCOLORAN (IVABRADINE) [Concomitant]
  7. DANCOR (NICORANDIL) (UNKNOWN) [Concomitant]
  8. GLUCOPHAGE (METFORMIN) [Concomitant]
  9. AMLODIPINE (AMLODIPINE) [Concomitant]
  10. NIASPAN (VITAMINS) [Concomitant]
  11. THROMBO ASS (ACETYLSALICYLIC ACID) [Concomitant]
  12. SIMVASTATIN (SIMVASTATIN) [Concomitant]
  13. ULSAL (RANITIDINE) [Concomitant]
  14. UROSIN (ALLOPURINOL) [Concomitant]
  15. MAGNOSOLOV (MAGNESIUM (DIFFERENT SALTS IN COMBINATION) [Concomitant]
  16. INSULIN (INSULINS AND ANALOGUES) [Concomitant]
  17. MELAXEN (PARACETAMOL) [Concomitant]
  18. DIACORDIN (DILTIAZEM) [Concomitant]
  19. DACORTIN (PREDNISOLONE) [Concomitant]

REACTIONS (3)
  - Tumour lysis syndrome [None]
  - Neutropenia [None]
  - Klebsiella sepsis [None]
